FAERS Safety Report 4935306-0 (Version None)
Quarter: 2006Q1

REPORT INFORMATION
  Report Type: 
  Country: None (occurrence: None)
  Receive Date: 20060307
  Receipt Date: 20060224
  Transmission Date: 20060701
  Serious: Yes (Death, Life-Threatening)
  Sender: FDA-Public Use
  Company Number: TR-MERCK-0602USA05935

PATIENT
  Age: 36 Year
  Sex: Female

DRUGS (3)
  1. DECADRON [Suspect]
     Indication: T-CELL LYMPHOMA
     Route: 048
  2. CISPLATIN [Suspect]
     Indication: T-CELL LYMPHOMA
     Route: 041
  3. CYTARABINE [Suspect]
     Indication: T-CELL LYMPHOMA
     Route: 065

REACTIONS (5)
  - BLOOD PRESSURE INCREASED [None]
  - DEATH [None]
  - HEPATIC FUNCTION ABNORMAL [None]
  - LEUKOENCEPHALOPATHY [None]
  - LYMPHOMA [None]
